FAERS Safety Report 18184709 (Version 4)
Quarter: 2020Q3

REPORT INFORMATION
  Report Type: Report from Study
  Country: US (occurrence: US)
  Receive Date: 20200824
  Receipt Date: 20200924
  Transmission Date: 20201103
  Serious: Yes (Other)
  Sender: FDA-Public Use
  Company Number: US-CLOVIS ONCOLOGY-CLO-2020-001049

PATIENT
  Sex: Female

DRUGS (5)
  1. RUBRACA [Suspect]
     Active Substance: RUCAPARIB CAMSYLATE
     Dosage: 600 MG, BID
     Route: 048
     Dates: start: 20200526
  2. RUBRACA [Suspect]
     Active Substance: RUCAPARIB CAMSYLATE
     Dosage: 600 MG, BID
     Route: 048
     Dates: start: 20200526, end: 202007
  3. RUBRACA [Suspect]
     Active Substance: RUCAPARIB CAMSYLATE
     Indication: OVARIAN CANCER
     Dosage: 600 MG, BID
     Route: 048
     Dates: start: 20200526
  4. RUBRACA [Suspect]
     Active Substance: RUCAPARIB CAMSYLATE
     Dosage: 1 DF, BID
     Route: 048
     Dates: start: 2020
  5. RUBRACA [Suspect]
     Active Substance: RUCAPARIB CAMSYLATE
     Dosage: 600 MG, BID
     Route: 048
     Dates: start: 20200526, end: 2020

REACTIONS (17)
  - Intestinal mass [Unknown]
  - Tongue disorder [Unknown]
  - Tumour marker increased [Unknown]
  - Fatigue [Unknown]
  - Surgery [Unknown]
  - Rectal discharge [Unknown]
  - Dyspepsia [Unknown]
  - Bone pain [Unknown]
  - Headache [Unknown]
  - Nausea [Unknown]
  - Platelet count decreased [Unknown]
  - Stomatitis [Unknown]
  - Ear pain [Unknown]
  - Gastrooesophageal reflux disease [Not Recovered/Not Resolved]
  - Pancreatic mass [Unknown]
  - Drug ineffective [Unknown]
  - Constipation [Unknown]

NARRATIVE: CASE EVENT DATE: 2020
